FAERS Safety Report 12762253 (Version 1)
Quarter: 2016Q3

REPORT INFORMATION
  Report Type: Spontaneous
  Country: US (occurrence: US)
  Receive Date: 20160920
  Receipt Date: 20160920
  Transmission Date: 20161109
  Serious: No
  Sender: FDA-Public Use
  Company Number: None

PATIENT
  Age: 26 Year
  Sex: Female
  Weight: 54.43 kg

DRUGS (1)
  1. MIRENA [Suspect]
     Active Substance: LEVONORGESTREL

REACTIONS (9)
  - Alopecia [None]
  - Anxiety [None]
  - Acne cystic [None]
  - Arthralgia [None]
  - Procedural pain [None]
  - Arthritis [None]
  - Insomnia [None]
  - Emotional disorder [None]
  - Social avoidant behaviour [None]

NARRATIVE: CASE EVENT DATE: 20160808
